FAERS Safety Report 7731042-6 (Version None)
Quarter: 2011Q3

REPORT INFORMATION
  Report Type: 
  Country: None (occurrence: None)
  Receive Date: 20110906
  Receipt Date: 20110906
  Transmission Date: 20111222
  Serious: Yes (Other)
  Sender: FDA-Public Use
  Company Number: None

PATIENT
  Age: 61 Year
  Sex: Female
  Weight: 85.275 kg

DRUGS (1)
  1. FERRLECIT [Suspect]

REACTIONS (6)
  - OEDEMA PERIPHERAL [None]
  - CHEST DISCOMFORT [None]
  - JOINT SWELLING [None]
  - GAIT DISTURBANCE [None]
  - BACK PAIN [None]
  - INCORRECT DRUG ADMINISTRATION RATE [None]
